FAERS Safety Report 10264941 (Version 1)
Quarter: 2014Q2

REPORT INFORMATION
  Report Type: Spontaneous
  Country: FR (occurrence: FR)
  Receive Date: 20140627
  Receipt Date: 20140627
  Transmission Date: 20141212
  Serious: Yes (Hospitalization, Other)
  Sender: FDA-Public Use
  Company Number: FR-PFIZER INC-2014171156

PATIENT
  Age: 25 Year
  Sex: Female

DRUGS (2)
  1. ADVIL [Suspect]
     Dosage: 400 MG
  2. IBUPROFEN [Suspect]
     Dosage: 400 MG

REACTIONS (1)
  - Cellulitis [Unknown]
